FAERS Safety Report 16599827 (Version 5)
Quarter: 2020Q1

REPORT INFORMATION
  Report Type: Report from Study
  Country: FR (occurrence: FR)
  Receive Date: 20190720
  Receipt Date: 20200302
  Transmission Date: 20200409
  Serious: Yes (Hospitalization, Other)
  Sender: FDA-Public Use
  Company Number: PHHY2019FR153062

PATIENT
  Age: 9 Month
  Sex: Female
  Weight: 7 kg

DRUGS (4)
  1. INEXIUM [Concomitant]
     Active Substance: ESOMEPRAZOLE
     Dosage: 10 MG, QD
     Route: 048
  2. PREDNISOLONE. [Concomitant]
     Active Substance: PREDNISOLONE
     Indication: ASPARTATE AMINOTRANSFERASE INCREASED
     Dosage: 15 MG, UNK
     Route: 065
     Dates: start: 20190620, end: 20190622
  3. INEXIUM [Concomitant]
     Active Substance: ESOMEPRAZOLE
     Indication: GASTROOESOPHAGEAL REFLUX DISEASE
     Dosage: 5 MG, QD
     Route: 048
     Dates: start: 201809
  4. AVXS-101 [Suspect]
     Active Substance: ONASEMNOGENE ABEPARVOVEC
     Indication: SPINAL MUSCULAR ATROPHY
     Dosage: 7.7 X 10 (14)
     Route: 041
     Dates: start: 20190621

REACTIONS (12)
  - White blood cell count abnormal [Recovered/Resolved]
  - Platelet count abnormal [Recovered/Resolved]
  - Aspartate aminotransferase increased [Recovering/Resolving]
  - Troponin T increased [Unknown]
  - Troponin increased [Not Recovered/Not Resolved]
  - Malnutrition [Not Recovered/Not Resolved]
  - Troponin I increased [Unknown]
  - Pyrexia [Recovered/Resolved]
  - Blood creatine phosphokinase increased [Unknown]
  - Poor feeding infant [Not Recovered/Not Resolved]
  - Bacterial infection [Recovered/Resolved]
  - Neutropenia [Unknown]

NARRATIVE: CASE EVENT DATE: 20190623
